FAERS Safety Report 22116800 (Version 1)
Quarter: 2023Q1

REPORT INFORMATION
  Report Type: Report from Study
  Country: CN (occurrence: None)
  Receive Date: 20230320
  Receipt Date: 20230320
  Transmission Date: 20230417
  Serious: Yes (Hospitalization)
  Sender: FDA-Public Use
  Company Number: 2022A089503

PATIENT
  Age: 60 Year
  Sex: Female

DRUGS (68)
  1. DURVALUMAB [Suspect]
     Active Substance: DURVALUMAB
     Indication: Oesophageal squamous cell carcinoma
     Route: 042
     Dates: start: 20211229, end: 20211229
  2. DURVALUMAB [Suspect]
     Active Substance: DURVALUMAB
     Indication: Oesophageal squamous cell carcinoma
     Route: 042
     Dates: start: 20220126, end: 20220126
  3. DURVALUMAB [Suspect]
     Active Substance: DURVALUMAB
     Indication: Oesophageal squamous cell carcinoma
     Route: 042
     Dates: start: 20220224, end: 20220224
  4. DURVALUMAB [Suspect]
     Active Substance: DURVALUMAB
     Indication: Oesophageal squamous cell carcinoma
     Route: 042
     Dates: start: 20220324, end: 20220324
  5. DURVALUMAB [Suspect]
     Active Substance: DURVALUMAB
     Indication: Oesophageal squamous cell carcinoma
     Route: 042
     Dates: start: 20220420, end: 20220420
  6. FLUOROURACIL [Suspect]
     Active Substance: FLUOROURACIL
     Indication: Oesophageal squamous cell carcinoma
     Dates: start: 20211229, end: 20220102
  7. FLUOROURACIL [Suspect]
     Active Substance: FLUOROURACIL
     Indication: Oesophageal squamous cell carcinoma
     Dates: start: 20220126, end: 20220130
  8. CISPLATIN [Concomitant]
     Active Substance: CISPLATIN
     Dates: start: 20211229, end: 20211229
  9. CISPLATIN [Concomitant]
     Active Substance: CISPLATIN
     Dates: start: 20220126, end: 20220126
  10. METOCLOPRAMIDEDI HYDROCHLORIDE INJECTION [Concomitant]
     Indication: Vomiting
     Route: 030
     Dates: start: 20220126, end: 20220203
  11. ROXATIDINE ACETATE HYDROCHLORIDE FOR INJECTION [Concomitant]
     Indication: Prophylaxis
     Route: 042
     Dates: start: 20220111, end: 20220118
  12. SODIUM BICARBONATE RINGER INJECTION [Concomitant]
     Indication: Dehydration
     Route: 042
     Dates: start: 20220126, end: 20220128
  13. FOSAPREPITANT DIMEGLUMINER FOR INJECTION [Concomitant]
     Indication: Vomiting
     Dosage: 150.0MG ONCE/SINGLE ADMINISTRATION
     Route: 042
     Dates: start: 20220126, end: 20220126
  14. DIPHENHYDRAMINE HYDROCHLORIDE [Concomitant]
     Active Substance: DIPHENHYDRAMINE HYDROCHLORIDE
     Indication: Vomiting
     Dosage: 20.0MG ONCE/SINGLE ADMINISTRATION
     Route: 030
     Dates: start: 20220126, end: 20220126
  15. DIPHENHYDRAMINE HYDROCHLORIDE [Concomitant]
     Active Substance: DIPHENHYDRAMINE HYDROCHLORIDE
     Indication: Vomiting
     Dosage: 20.0MG ONCE/SINGLE ADMINISTRATION
     Route: 030
     Dates: start: 20220127, end: 20220127
  16. AMINO ACIDS, SOURCE UNSPECIFIED [Concomitant]
     Active Substance: AMINO ACIDS, SOURCE UNSPECIFIED
     Indication: Nutritional supplementation
     Route: 042
     Dates: start: 20220121, end: 20220208
  17. FUROSEMIDE [Concomitant]
     Active Substance: FUROSEMIDE
     Indication: Oedema
     Route: 042
     Dates: start: 20220126, end: 20220129
  18. FUROSEMIDE [Concomitant]
     Active Substance: FUROSEMIDE
     Indication: Oedema
     Route: 042
     Dates: start: 20220208, end: 20220208
  19. COMPOUND SODIUM ACETAET RINGER INJECTION [Concomitant]
     Indication: Dehydration
     Route: 042
     Dates: start: 20220112, end: 20220128
  20. COMPOUND SODIUM ACETAET RINGER INJECTION [Concomitant]
     Indication: Dehydration
     Route: 042
     Dates: start: 20220202, end: 20220208
  21. ASCORBIC ACID [Concomitant]
     Active Substance: ASCORBIC ACID
     Indication: Nutritional supplementation
     Route: 042
     Dates: start: 20220126, end: 20220127
  22. ASCORBIC ACID [Concomitant]
     Active Substance: ASCORBIC ACID
     Indication: Pyrexia
     Route: 042
     Dates: start: 20220126, end: 20220127
  23. ASCORBIC ACID [Concomitant]
     Active Substance: ASCORBIC ACID
     Indication: Nutritional supplementation
     Route: 042
     Dates: start: 20220206, end: 20220207
  24. ASCORBIC ACID [Concomitant]
     Active Substance: ASCORBIC ACID
     Indication: Pyrexia
     Route: 042
     Dates: start: 20220206, end: 20220207
  25. VITAMIN B6 [Concomitant]
     Active Substance: PYRIDOXINE HYDROCHLORIDE
     Indication: Nutritional supplementation
     Route: 042
     Dates: start: 20220126, end: 20220127
  26. VITAMIN B6 [Concomitant]
     Active Substance: PYRIDOXINE HYDROCHLORIDE
     Indication: Pyrexia
     Route: 042
     Dates: start: 20220126, end: 20220127
  27. VITAMIN B6 [Concomitant]
     Active Substance: PYRIDOXINE HYDROCHLORIDE
     Indication: Nutritional supplementation
     Route: 042
     Dates: start: 20220206, end: 20220207
  28. VITAMIN B6 [Concomitant]
     Active Substance: PYRIDOXINE HYDROCHLORIDE
     Indication: Pyrexia
     Route: 042
     Dates: start: 20220206, end: 20220207
  29. SHENMAIZHUSHEYE [Concomitant]
     Indication: Nutritional supplementation
     Route: 042
     Dates: start: 20220128, end: 20220208
  30. FONDAPARINUX SODIUM INJECTION [Concomitant]
     Indication: Thrombosis
     Route: 058
     Dates: start: 20220127, end: 20220201
  31. FONDAPARINUX SODIUM INJECTION [Concomitant]
     Indication: Thrombosis
     Route: 058
     Dates: start: 20220202, end: 20220207
  32. ESOMEPRAZOLE SODIUM [Concomitant]
     Active Substance: ESOMEPRAZOLE SODIUM
     Indication: Prophylaxis
     Route: 042
     Dates: start: 20220126, end: 20220203
  33. ESOMEPRAZOLE SODIUM [Concomitant]
     Active Substance: ESOMEPRAZOLE SODIUM
     Indication: Prophylaxis
     Route: 042
     Dates: start: 20220208
  34. BUDESONIDE [Concomitant]
     Active Substance: BUDESONIDE
     Indication: Productive cough
     Route: 055
     Dates: start: 20220104, end: 20220129
  35. AMBROXOL HYDROCHLORIDE SOLUTION FOR INHALATION [Concomitant]
     Indication: Productive cough
     Route: 055
     Dates: start: 20220104, end: 20220129
  36. RENSHENGUBENKOU FUYE [Concomitant]
     Indication: Nutritional supplementation
     Route: 048
     Dates: start: 20220113, end: 20220116
  37. CARBOHYDRATES\FATTY ACIDS\MINERALS\PROTEIN\VITAMINS [Concomitant]
     Active Substance: CARBOHYDRATES\FATTY ACIDS\MINERALS\PROTEIN\VITAMINS
     Indication: Nutritional supplementation
     Route: 048
     Dates: start: 20220124, end: 20220130
  38. SODIUM TIOPRONIN FOR INJECTION [Concomitant]
     Indication: Liver transplant rejection
     Route: 042
     Dates: start: 20220126, end: 20220203
  39. TROPISETRON HYDROCHLORIDE SOLUTION FOR INJECTION [Concomitant]
     Indication: Vomiting
     Route: 042
     Dates: start: 20220126, end: 20220130
  40. LIPOSYN (R) INTRAVENOUS FAT EMULSION [Concomitant]
     Active Substance: LIPOSYN (R) INTRAVENOUS FAT EMULSION
     Indication: Nutritional supplementation
     Route: 042
     Dates: start: 20220128, end: 20220129
  41. STRUCTURAL FAT EMULSION INJECTION (C6-24) [Concomitant]
     Indication: Nutritional supplementation
     Route: 042
     Dates: start: 20220128, end: 20220129
  42. STRUCTURAL FAT EMULSION INJECTION (C6-24) [Concomitant]
     Indication: Nutritional supplementation
     Route: 042
     Dates: start: 20220207, end: 20220208
  43. FAT EMULSION AMINO ACIDS(17) AND GLUCOSE(11%) INJECTION [Concomitant]
     Indication: Nutritional supplementation
     Route: 042
     Dates: start: 20220128, end: 20220204
  44. VITAMINS [Concomitant]
     Active Substance: VITAMINS
     Indication: Nutritional supplementation
     Dosage: 1.0 BRANCH EVERY OTHER DAY
     Route: 042
     Dates: start: 20220128, end: 20220204
  45. FISH OIL [Concomitant]
     Active Substance: FISH OIL
     Indication: Nutritional supplementation
     Route: 042
     Dates: start: 20220128, end: 20220204
  46. CONCENTRATE OF TRACE ELEMENTS SOLUTION FOR INFUSION [Concomitant]
     Indication: Nutritional supplementation
     Route: 042
     Dates: start: 20220128, end: 20220204
  47. ALBUMIN HUMAN [Concomitant]
     Active Substance: ALBUMIN HUMAN
     Indication: Nutritional supplementation
     Route: 042
     Dates: start: 20220207, end: 20220208
  48. MONTMORILLONITE POWDER [Concomitant]
     Indication: Diarrhoea
     Route: 048
     Dates: start: 20220201, end: 20220202
  49. SUHUANGZHIKEJIAONA NG [Concomitant]
     Indication: Cough
     Route: 048
     Dates: start: 20220109, end: 20220113
  50. INDOMETHACIN [Concomitant]
     Active Substance: INDOMETHACIN
     Indication: Pyrexia
     Dosage: 50.0MG ONCE/SINGLE ADMINISTRATION
     Route: 054
     Dates: start: 20220109, end: 20220109
  51. LIANHUAQINGWENJIA ONANG [Concomitant]
     Indication: Cough
     Route: 048
     Dates: start: 20220109, end: 20220109
  52. LIANHUAQINGWENJIA ONANG [Concomitant]
     Indication: Pyrexia
     Route: 048
     Dates: start: 20220109, end: 20220109
  53. LIANHUAQINGWENJIA ONANG [Concomitant]
     Indication: Cough
     Route: 048
     Dates: start: 20220127, end: 20220128
  54. LIANHUAQINGWENJIA ONANG [Concomitant]
     Indication: Pyrexia
     Route: 048
     Dates: start: 20220127, end: 20220128
  55. LIANHUAQINGWENJIA ONANG [Concomitant]
     Indication: Cough
     Route: 048
     Dates: start: 20220207, end: 20220208
  56. LIANHUAQINGWENJIA ONANG [Concomitant]
     Indication: Pyrexia
     Route: 048
     Dates: start: 20220207, end: 20220208
  57. LEVOFLOXACIN AND SODIUM CHLORIDE INJECTION [Concomitant]
     Indication: Cough
     Dosage: 0.5G ONCE/SINGLE ADMINISTRATION
     Route: 042
     Dates: start: 20220111, end: 20220111
  58. LEVOFLOXACIN AND SODIUM CHLORIDE INJECTION [Concomitant]
     Indication: Cough
     Dosage: 0.5G ONCE/SINGLE ADMINISTRATION
     Route: 042
     Dates: start: 20220207, end: 20220208
  59. CEFOPERAZONE SODIUM\SULBACTAM SODIUM [Concomitant]
     Active Substance: CEFOPERAZONE SODIUM\SULBACTAM SODIUM
     Indication: Pyrexia
     Route: 042
     Dates: start: 20220112, end: 20220120
  60. COMPOUND LIQUORICE TABLETS [Concomitant]
     Indication: Cough
     Route: 048
     Dates: start: 20220112, end: 20220113
  61. IBUPROFEN SUSPENSION [Concomitant]
     Indication: Pyrexia
     Route: 048
     Dates: start: 20220112, end: 20220113
  62. RECOMBINANT HUMAN GRANULOCYTE/MACROPH AGE COLONY-STIMULATING FACTOR... [Concomitant]
     Indication: Leukopenia
     Route: 058
     Dates: start: 20220118, end: 20220120
  63. YANGWEIKELI [Concomitant]
     Indication: Nausea
     Route: 048
     Dates: start: 20220128, end: 20220130
  64. ACETAMINOPHEN\DIPHENHYDRAMINE HYDROCHLORIDE [Concomitant]
     Active Substance: ACETAMINOPHEN\DIPHENHYDRAMINE HYDROCHLORIDE
     Indication: Pyrexia
     Route: 048
     Dates: start: 20220127, end: 20220128
  65. MOXIFLOXACIN HYDROCHLORIDE AND SODIUM CHLORIDE INJECTION [Concomitant]
     Indication: Cough
     Route: 042
     Dates: start: 20220207, end: 20220208
  66. CONCENTRATED SODIUM CHLORIDE INJECTION [Concomitant]
     Indication: Symptomatic treatment
     Dosage: 8.0G ONCE/SINGLE ADMINISTRATION
     Route: 042
     Dates: start: 20220129, end: 20220129
  67. ACECLOFENAC\ACETAMINOPHEN [Concomitant]
     Active Substance: ACECLOFENAC\ACETAMINOPHEN
     Indication: Pyrexia
     Dates: start: 20220127, end: 20220128
  68. AMINOMETHAMINE TABLETS [Concomitant]
     Indication: Pyrexia
     Dates: start: 20220127, end: 20220128

REACTIONS (1)
  - Oesophageal fistula [Not Recovered/Not Resolved]

NARRATIVE: CASE EVENT DATE: 20220208
